FAERS Safety Report 9725320 (Version 2)
Quarter: 2013Q4

REPORT INFORMATION
  Report Type: Report from Study
  Country: US (occurrence: US)
  Receive Date: 20131203
  Receipt Date: 20131203
  Transmission Date: 20140711
  Serious: Yes (Hospitalization)
  Sender: FDA-Public Use
  Company Number: US-ROCHE-1266803

PATIENT
  Age: 59 Year
  Sex: Female

DRUGS (9)
  1. PEGASYS [Suspect]
     Indication: CHRONIC HEPATITIS C
     Route: 058
     Dates: start: 20130608, end: 20131116
  2. COPEGUS [Suspect]
     Indication: CHRONIC HEPATITIS C
     Route: 048
     Dates: start: 20130608, end: 20131116
  3. INCIVEK [Suspect]
     Indication: CHRONIC HEPATITIS C
     Route: 048
     Dates: start: 20130608, end: 20131110
  4. ASPIRIN [Concomitant]
     Dosage: TAKE 2
     Route: 048
  5. CARDIZEM CD [Concomitant]
     Indication: HYPERTENSION
     Dosage: TAKE 1
     Route: 048
  6. CITALOPRAM [Concomitant]
     Indication: DEPRESSION
     Route: 048
  7. LACTULOSE [Concomitant]
     Dosage: 10G/15ML
     Route: 048
  8. MORPHINE [Concomitant]
     Indication: PAIN
     Route: 048
  9. NADOLOL [Concomitant]
     Route: 048

REACTIONS (7)
  - Pancytopenia [Recovered/Resolved]
  - Muscle spasms [Unknown]
  - Flatulence [Unknown]
  - White blood cell count decreased [Unknown]
  - Memory impairment [Unknown]
  - Pain [Unknown]
  - Balance disorder [Unknown]
